FAERS Safety Report 16108473 (Version 2)
Quarter: 2020Q1

REPORT INFORMATION
  Report Type: Spontaneous
  Country: US (occurrence: US)
  Receive Date: 20190323
  Receipt Date: 20200103
  Transmission Date: 20200409
  Serious: No
  Sender: FDA-Public Use
  Company Number: US-BIOGEN-2018BI00635272

PATIENT
  Sex: Female

DRUGS (8)
  1. PHENTERMINE HYDROCHLORIDE. [Concomitant]
     Active Substance: PHENTERMINE HYDROCHLORIDE
     Route: 065
  2. METFORMIN HYDROCHLORIDE. [Concomitant]
     Active Substance: METFORMIN HYDROCHLORIDE
     Route: 065
  3. TECFIDERA [Suspect]
     Active Substance: DIMETHYL FUMARATE
     Indication: MULTIPLE SCLEROSIS
     Dosage: TAKE 1 CAPSULE BY MOUTH TWICE A DAY
     Route: 050
     Dates: start: 201809
  4. ASPIRIN. [Concomitant]
     Active Substance: ASPIRIN
     Route: 065
  5. CIPRO [Concomitant]
     Active Substance: CIPROFLOXACIN HYDROCHLORIDE
     Route: 065
  6. ZEAXANTHIN [Concomitant]
     Active Substance: ZEAXANTHIN
     Route: 065
  7. MELOXICAM. [Concomitant]
     Active Substance: MELOXICAM
     Route: 065
  8. DOXYCYCLINE HYCLATE. [Concomitant]
     Active Substance: DOXYCYCLINE HYCLATE
     Route: 065

REACTIONS (4)
  - Flushing [Not Recovered/Not Resolved]
  - Product dose omission [Recovered/Resolved]
  - Pruritus [Not Recovered/Not Resolved]
  - Burning sensation [Not Recovered/Not Resolved]
